FAERS Safety Report 9979270 (Version 2)
Quarter: 2014Q1

REPORT INFORMATION
  Report Type: Report from Study
  Country: PR (occurrence: PR)
  Receive Date: 20140306
  Receipt Date: 20140306
  Transmission Date: 20141002
  Serious: No
  Sender: FDA-Public Use
  Company Number: PR-ABBVIE-13P-131-1161331-00

PATIENT
  Sex: Male
  Weight: 59.47 kg

DRUGS (5)
  1. HUMIRA [Suspect]
     Indication: RHEUMATOID ARTHRITIS
     Route: 058
     Dates: end: 201311
  2. TRAMADOL [Concomitant]
     Indication: PAIN
     Route: 048
  3. NEURONTIN [Concomitant]
     Indication: FIBROMYALGIA
     Route: 048
  4. ROLAIDS [Concomitant]
     Indication: PROPHYLAXIS
     Route: 048
  5. ROLAIDS [Concomitant]
     Indication: GASTRIC DISORDER

REACTIONS (2)
  - Drug ineffective [Not Recovered/Not Resolved]
  - Pain [Not Recovered/Not Resolved]
